FAERS Safety Report 14495531 (Version 2)
Quarter: 2018Q1

REPORT INFORMATION
  Report Type: Report from Study
  Country: US (occurrence: US)
  Receive Date: 20180206
  Receipt Date: 20180222
  Transmission Date: 20180509
  Serious: Yes (Hospitalization)
  Sender: FDA-Public Use
  Company Number: US-VIFOR (INTERNATIONAL) INC.-VIT-2018-01105

PATIENT
  Age: 79 Year
  Sex: Male
  Weight: 77.18 kg

DRUGS (1)
  1. VELTASSA [Suspect]
     Active Substance: PATIROMER
     Indication: HYPERKALAEMIA
     Route: 048
     Dates: start: 20171102, end: 201801

REACTIONS (5)
  - Off label use [Unknown]
  - Dyspnoea [Recovering/Resolving]
  - Renal disorder [Unknown]
  - Condition aggravated [Unknown]
  - Respiratory disorder [Recovering/Resolving]

NARRATIVE: CASE EVENT DATE: 20180110
